FAERS Safety Report 9379291 (Version 1)
Quarter: 2013Q3

REPORT INFORMATION
  Report Type: Spontaneous
  Country: US (occurrence: US)
  Receive Date: 20130702
  Receipt Date: 20130702
  Transmission Date: 20140515
  Serious: No
  Sender: FDA-Public Use
  Company Number: US-BAYER-2013-080492

PATIENT
  Age: 67 Year
  Sex: Female
  Weight: 86 kg

DRUGS (6)
  1. ALEVE CAPLET [Suspect]
     Indication: HEADACHE
     Dosage: 2 DF, PRN
     Dates: start: 201305, end: 201306
  2. ALEVE CAPLET [Suspect]
     Indication: ARTHRITIS
  3. IBUPROFEN [Concomitant]
     Indication: PAIN
  4. CELEXA [Concomitant]
  5. BAYER ASPIRIN REGIMEN ADULT LOW STRENGTH [Concomitant]
  6. SINGULAIR [Concomitant]

REACTIONS (1)
  - Drug ineffective [None]
